FAERS Safety Report 12478655 (Version 1)
Quarter: 2016Q2

REPORT INFORMATION
  Report Type: Spontaneous
  Country: AU (occurrence: AU)
  Receive Date: 20160619
  Receipt Date: 20160619
  Transmission Date: 20160815
  Serious: Yes (Other)
  Sender: FDA-Public Use
  Company Number: AU-BRISTOL-MYERS SQUIBB COMPANY-BMS-2016-046787

PATIENT

DRUGS (1)
  1. DAKLINZA [Suspect]
     Active Substance: DACLATASVIR
     Indication: PRODUCT USED FOR UNKNOWN INDICATION
     Dosage: N/A
     Route: 065

REACTIONS (1)
  - HIV infection [Unknown]
